FAERS Safety Report 20206170 (Version 1)
Quarter: 2021Q4

REPORT INFORMATION
  Report Type: Spontaneous
  Country: None (occurrence: US)
  Receive Date: 20211220
  Receipt Date: 20211220
  Transmission Date: 20220303
  Serious: No
  Sender: FDA-Public Use
  Company Number: US-Stallergenes SAS-2123194

PATIENT
  Age: 42 Year
  Sex: Female

DRUGS (1)
  1. ORALAIR [Suspect]
     Active Substance: ANTHOXANTHUM ODORATUM POLLEN\DACTYLIS GLOMERATA POLLEN\LOLIUM PERENNE POLLEN\PHLEUM PRATENSE POLLEN\
     Indication: Rhinitis allergic
     Route: 060
     Dates: start: 20211101

REACTIONS (1)
  - Cough [Unknown]

NARRATIVE: CASE EVENT DATE: 20211101
